FAERS Safety Report 18311462 (Version 1)
Quarter: 2020Q3

REPORT INFORMATION
  Report Type: Spontaneous
  Country: US (occurrence: US)
  Receive Date: 20200925
  Receipt Date: 20200925
  Transmission Date: 20201103
  Serious: Yes (Hospitalization, Disabling, Other)
  Sender: FDA-Public Use
  Company Number: US-SA-2020SA260173

PATIENT

DRUGS (1)
  1. ZANTAC [Suspect]
     Active Substance: RANITIDINE HYDROCHLORIDE
     Route: 048

REACTIONS (12)
  - Anhedonia [Unknown]
  - Mental disorder [Unknown]
  - Prostate cancer [Unknown]
  - Depression [Unknown]
  - Injury [Unknown]
  - Hospitalisation [Unknown]
  - Deformity [Unknown]
  - Life expectancy shortened [Unknown]
  - Pain [Unknown]
  - Anxiety [Unknown]
  - Stress [Unknown]
  - Disability [Unknown]
